FAERS Safety Report 5289567-1 (Version None)
Quarter: 2007Q2

REPORT INFORMATION
  Report Type: 
  Country: None (occurrence: None)
  Receive Date: 20070406
  Receipt Date: 20070322
  Transmission Date: 20071010
  Serious: Yes (Hospitalization)
  Sender: FDA-Public Use
  Company Number: US-JNJFOC-20070305501

PATIENT
  Sex: Female

DRUGS (11)
  1. INFLIXIMAB [Suspect]
     Indication: RHEUMATOID ARTHRITIS
     Route: 042
  2. ALEVE [Concomitant]
  3. FOLIC ACID [Concomitant]
  4. GLIPZIDE [Concomitant]
  5. GLUCOPHAGE [Concomitant]
  6. HYDROCHLOROTHIAZIDE [Concomitant]
  7. LISINOPRIL [Concomitant]
  8. MULTI-VITAMIN [Concomitant]
  9. AVANDIA [Concomitant]
  10. METHOTREXATE [Concomitant]
  11. CALCIUM [Concomitant]

REACTIONS (1)
  - ATRIAL FIBRILLATION [None]
